APPROVED DRUG PRODUCT: CIPROFLOXACIN
Active Ingredient: CIPROFLOXACIN
Strength: 400MG/40ML (10MG/ML)
Dosage Form/Route: INJECTABLE;INJECTION
Application: A076717 | Product #002
Applicant: HIKMA FARMACEUTICA (PORTUGAL) SA
Approved: Dec 22, 2009 | RLD: No | RS: Yes | Type: RX